FAERS Safety Report 21141545 (Version 1)
Quarter: 2022Q3

REPORT INFORMATION
  Report Type: Spontaneous
  Country: US (occurrence: None)
  Receive Date: 20220727
  Receipt Date: 20220727
  Transmission Date: 20221027
  Serious: Yes (Other)
  Sender: FDA-Public Use
  Company Number: None

PATIENT
  Age: 40 Year
  Sex: Female
  Weight: 83.25 kg

DRUGS (6)
  1. MAGNESIUM CITRATE [Suspect]
     Active Substance: MAGNESIUM CITRATE
     Indication: Constipation
     Dosage: FREQUENCY : AT BEDTIME;?
     Route: 048
  2. VITAMIN D [Concomitant]
     Active Substance: VITAMIN D NOS
  3. FIBER [Concomitant]
     Active Substance: PSYLLIUM HUSK
  4. Zyertec [Concomitant]
  5. FOLIC ACID [Concomitant]
     Active Substance: FOLIC ACID
  6. OMEGA 3 [Concomitant]
     Active Substance: CAPSAICIN

REACTIONS (8)
  - Abdominal pain upper [None]
  - Vomiting [None]
  - Hyperhidrosis [None]
  - Headache [None]
  - Dehydration [None]
  - Dizziness [None]
  - Food poisoning [None]
  - Fatigue [None]

NARRATIVE: CASE EVENT DATE: 20200718
